FAERS Safety Report 20422055 (Version 1)
Quarter: 2022Q1

REPORT INFORMATION
  Report Type: Spontaneous
  Country: GB (occurrence: GB)
  Receive Date: 20220203
  Receipt Date: 20220203
  Transmission Date: 20220423
  Serious: Yes (Hospitalization)
  Sender: FDA-Public Use
  Company Number: GB-VERTEX PHARMACEUTICALS-2021-017859

PATIENT
  Age: 44 Year
  Sex: Male
  Weight: 97 kg

DRUGS (8)
  1. ELEXACAFTOR\IVACAFTOR\TEZACAFTOR [Suspect]
     Active Substance: ELEXACAFTOR\IVACAFTOR\TEZACAFTOR
     Indication: Cystic fibrosis
     Dosage: UNK
     Route: 048
  2. KALYDECO [Suspect]
     Active Substance: IVACAFTOR
     Indication: Cystic fibrosis
     Dosage: UNK FREQ
     Route: 048
  3. TERBUTALINE [Concomitant]
     Active Substance: TERBUTALINE
     Indication: Cystic fibrosis
     Dosage: 75 MILLIGRAM, QD
     Dates: start: 20211108
  4. CREON [Concomitant]
     Active Substance: PANCRELIPASE AMYLASE\PANCRELIPASE LIPASE\PANCRELIPASE PROTEASE
     Dosage: UNK, TID
     Route: 048
     Dates: start: 2005
  5. IPRATROPIUM [Concomitant]
     Active Substance: IPRATROPIUM
     Indication: Cystic fibrosis
     Dosage: 500 MICROGRAM, QD
     Dates: start: 1996
  6. VENTOLIN [Concomitant]
     Active Substance: ALBUTEROL SULFATE
     Indication: Cystic fibrosis
     Dosage: 200 MICROGRAM, PRN
     Dates: start: 1996
  7. NOVORAPID [Concomitant]
     Active Substance: INSULIN ASPART
     Indication: Diabetes mellitus
     Dosage: 100 U/ML
     Route: 058
  8. SILDENAFIL [Concomitant]
     Active Substance: SILDENAFIL
     Indication: Erectile dysfunction
     Dosage: 100 MICROGRAM, PRN
     Route: 048

REACTIONS (1)
  - Infective pulmonary exacerbation of cystic fibrosis [Recovered/Resolved]

NARRATIVE: CASE EVENT DATE: 20211103
